FAERS Safety Report 12175074 (Version 2)
Quarter: 2016Q1

REPORT INFORMATION
  Report Type: Spontaneous
  Country: FR (occurrence: FR)
  Receive Date: 20160314
  Receipt Date: 20160317
  Transmission Date: 20160526
  Serious: Yes (Hospitalization, Other)
  Sender: FDA-Public Use
  Company Number: FR-VIIV HEALTHCARE LIMITED-FR2016GSK034742

PATIENT
  Age: 7 Day
  Sex: Male
  Weight: 1.6 kg

DRUGS (3)
  1. RETROVIR [Suspect]
     Active Substance: ZIDOVUDINE
     Indication: PROPHYLAXIS AGAINST HIV INFECTION
     Dosage: 1.5 MG/KG, BID
     Route: 042
     Dates: start: 20160104
  2. RETROVIR [Suspect]
     Active Substance: ZIDOVUDINE
     Dosage: UNK
     Dates: start: 20160111
  3. RETROVIR [Suspect]
     Active Substance: ZIDOVUDINE
     Dosage: 0.3 MG/KG, BID
     Dates: start: 20160118, end: 20160202

REACTIONS (6)
  - Necrotising enterocolitis neonatal [Recovered/Resolved]
  - Neonatal cholestasis [Unknown]
  - Dyspepsia [Recovered/Resolved]
  - Anaemia neonatal [Recovered/Resolved]
  - Neutropenia neonatal [Recovered/Resolved]
  - Abdominal distension [Recovered/Resolved]

NARRATIVE: CASE EVENT DATE: 20160111
